FAERS Safety Report 8715655 (Version 2)
Quarter: 2012Q4

REPORT INFORMATION
  Report Type: 
  Country: US (occurrence: US)
  Receive Date: 20120809
  Receipt Date: 20120829
  Transmission Date: 20130627
  Serious: Yes (Hospitalization)
  Sender: FDA-Public Use
  Company Number: US-GENZYME-POMP-1002359

PATIENT
  Age: 16 Year
  Sex: Female
  Weight: 50.6 kg

DRUGS (7)
  1. LUMIZYME [Suspect]
     Indication: GLYCOGEN STORAGE DISEASE TYPE II
     Dosage: 17.8 mg/kg, q2w
     Route: 042
     Dates: start: 2012
  2. LUMIZYME [Suspect]
     Dosage: 19.8 mg/kg, q2w
     Route: 042
     Dates: start: 2012
  3. BENADRYL [Concomitant]
     Indication: PREMEDICATION
     Dosage: 50 mg, UNK
     Route: 048
  4. SOLU MEDROL [Concomitant]
     Indication: PREMEDICATION
     Dosage: 40 mg, UNK
     Route: 042
  5. IBUPROFEN [Concomitant]
     Indication: PREMEDICATION
     Dosage: 400 mg, UNK
     Route: 048
  6. ZOLOFT [Concomitant]
     Indication: PRODUCT USED FOR UNKNOWN INDICATION
     Dosage: UNK
     Route: 065
  7. ELAVIL [Concomitant]
     Indication: PRODUCT USED FOR UNKNOWN INDICATION
     Dosage: UNK
     Route: 065

REACTIONS (7)
  - Muscle spasms [Not Recovered/Not Resolved]
  - Nausea [Recovered/Resolved]
  - Myalgia [Not Recovered/Not Resolved]
  - Paraesthesia [Not Recovered/Not Resolved]
  - Pain in extremity [Not Recovered/Not Resolved]
  - Musculoskeletal chest pain [Not Recovered/Not Resolved]
  - Blood creatine phosphokinase increased [Unknown]
